FAERS Safety Report 8602666-9 (Version None)
Quarter: 2012Q2

REPORT INFORMATION
  Report Type: 
  Country: None (occurrence: None)
  Receive Date: 20120423
  Receipt Date: 20090529
  Transmission Date: 20120825
  Serious: Yes (Other)
  Sender: FDA-Public Use
  Company Number: PHEH2009US05616

PATIENT
  Sex: Female

DRUGS (2)
  1. FEMARA [Suspect]
     Indication: BREAST CANCER STAGE IV
  2. ZOMETA [Suspect]

REACTIONS (3)
  - ARTHRALGIA [None]
  - HYPERHIDROSIS [None]
  - HYPOAESTHESIA [None]
